FAERS Safety Report 4698525-7 (Version None)
Quarter: 2005Q2

REPORT INFORMATION
  Report Type: 
  Country: None (occurrence: None)
  Receive Date: 20050622
  Receipt Date: 20050613
  Transmission Date: 20051028
  Serious: Yes (Other)
  Sender: FDA-Public Use
  Company Number: 2005088967

PATIENT
  Sex: Female
  Weight: 62.5964 kg

DRUGS (4)
  1. CELEBREX [Suspect]
     Indication: OSTEOARTHRITIS
     Dosage: 200 MG (200 MG PRN) ORAL
     Route: 048
     Dates: start: 20040101
  2. TOPROL (METOPROLOL) [Concomitant]
  3. SYNTHROID [Concomitant]
  4. ACTONEL [Concomitant]

REACTIONS (2)
  - DRUG EFFECT DECREASED [None]
  - PAIN [None]
